FAERS Safety Report 7246932-0 (Version None)
Quarter: 2011Q1

REPORT INFORMATION
  Report Type: 
  Country: None (occurrence: None)
  Receive Date: 20110127
  Receipt Date: 20110117
  Transmission Date: 20110831
  Serious: Yes (Hospitalization)
  Sender: FDA-Public Use
  Company Number: FR-JNJFOC-20110105154

PATIENT

DRUGS (7)
  1. SEROPLEX [Concomitant]
     Route: 048
     Dates: start: 20100806
  2. NOROXIN [Concomitant]
     Route: 048
     Dates: start: 20100803, end: 20100811
  3. LOXAPAC [Suspect]
     Indication: AGITATION
     Route: 048
     Dates: start: 20100806, end: 20100808
  4. MEMANTINE HCL [Suspect]
     Indication: DEMENTIA ALZHEIMER'S TYPE
     Route: 048
     Dates: end: 20100810
  5. HALDOL [Suspect]
     Indication: AGITATION
     Dosage: 2MG/ML
     Route: 048
     Dates: start: 20100805, end: 20100805
  6. RISPERDAL [Suspect]
     Indication: AGITATION
     Dosage: 1MG/ML
     Route: 048
     Dates: start: 20100806, end: 20100809
  7. EQUANIL [Suspect]
     Indication: ANXIETY
     Route: 048
     Dates: start: 20100731, end: 20100805

REACTIONS (3)
  - APATHY [None]
  - URINARY RETENTION [None]
  - SOMNOLENCE [None]
